FAERS Safety Report 9402008 (Version 1)
Quarter: 2013Q3

REPORT INFORMATION
  Report Type: Report from Study
  Country: MX (occurrence: MX)
  Receive Date: 20130716
  Receipt Date: 20130716
  Transmission Date: 20140515
  Serious: Yes (Other)
  Sender: FDA-Public Use
  Company Number: MX-ROCHE-1248830

PATIENT
  Sex: Female

DRUGS (1)
  1. HERCEPTIN [Suspect]
     Indication: BREAST CANCER
     Route: 042
     Dates: start: 20100722, end: 20110819

REACTIONS (5)
  - Drug-induced liver injury [Unknown]
  - Headache [Unknown]
  - Post procedural discomfort [Unknown]
  - Dyspepsia [Unknown]
  - Hepatic steatosis [Unknown]
